FAERS Safety Report 17510489 (Version 2)
Quarter: 2020Q1

REPORT INFORMATION
  Report Type: Report from Study
  Country: US (occurrence: US)
  Receive Date: 20200306
  Receipt Date: 20200314
  Transmission Date: 20200409
  Serious: Yes (Hospitalization)
  Sender: FDA-Public Use
  Company Number: US-ACTELION-A-US2019-192739

PATIENT
  Sex: Male
  Weight: 21.77 kg

DRUGS (18)
  1. DOCUSATE [Concomitant]
     Active Substance: DOCUSATE
     Dosage: 80 MG, BID
  2. DIGOXIN. [Concomitant]
     Active Substance: DIGOXIN
     Dosage: 125 MG, QD
  3. SENNA [Concomitant]
     Active Substance: SENNA LEAF\SENNOSIDES\SENNOSIDES A AND B
     Dosage: 8.8 MG, QD
  4. ALBUTEROL. [Concomitant]
     Active Substance: ALBUTEROL
     Dosage: 90 MCG, PRN, 6-8 PUFFS
  5. REVATIO [Concomitant]
     Active Substance: SILDENAFIL CITRATE
     Dosage: 20 MG, QID
  6. FUROSEMIDE. [Concomitant]
     Active Substance: FUROSEMIDE
     Dosage: 30 MG, BID
  7. LEVOTHYROXINE. [Concomitant]
     Active Substance: LEVOTHYROXINE
     Dosage: 62.5 MG, QD
  8. FLUTICASONE. [Concomitant]
     Active Substance: FLUTICASONE
     Dosage: 50 MCG, BID,
  9. OXYGEN. [Concomitant]
     Active Substance: OXYGEN
  10. BUDESONIDE W/FORMOTEROL [Concomitant]
     Active Substance: BUDESONIDE\FORMOTEROL
     Dosage: 80 MCG/4.5 2 PUFFS, BID
  11. LEVETIRACETAM. [Concomitant]
     Active Substance: LEVETIRACETAM
     Dosage: 450 MG, BID
  12. OMEPRAZOLE. [Concomitant]
     Active Substance: OMEPRAZOLE
     Dosage: 10 MG, QD
  13. VENTAVIS [Suspect]
     Active Substance: ILOPROST
     Indication: PULMONARY HYPERTENSION
     Dosage: 5 MCG  6 TO 9 TIMES PER DAY
     Route: 055
  14. FLUTICASONE. [Concomitant]
     Active Substance: FLUTICASONE
     Dosage: 220 MCG, BID
  15. LORAZEPAM. [Concomitant]
     Active Substance: LORAZEPAM
     Dosage: 2.4 MG, QID, PRN
  16. VENTAVIS [Suspect]
     Active Substance: ILOPROST
     Dosage: 6 MCG, QID
     Route: 055
  17. LETAIRIS [Concomitant]
     Active Substance: AMBRISENTAN
     Dosage: 5 MG, QD
  18. MULTIPLE VITAMINS [Concomitant]
     Active Substance: VITAMINS
     Dosage: 5 ML, QD

REACTIONS (2)
  - Seizure [Unknown]
  - Inflammation [Unknown]
